FAERS Safety Report 8005966-9 (Version None)
Quarter: 2011Q4

REPORT INFORMATION
  Report Type: 
  Country: None (occurrence: None)
  Receive Date: 20111223
  Receipt Date: 20111215
  Transmission Date: 20120403
  Serious: Yes (Other)
  Sender: FDA-Public Use
  Company Number: US-ASTRAZENECA-2011SE71860

PATIENT
  Age: 55 Year
  Sex: Female

DRUGS (1)
  1. NEXIUM [Suspect]
     Route: 048

REACTIONS (8)
  - DRUG DOSE OMISSION [None]
  - VASCULAR OCCLUSION [None]
  - EYE INFECTION [None]
  - MYOCARDIAL INFARCTION [None]
  - ANAEMIA [None]
  - BLINDNESS UNILATERAL [None]
  - DYSPNOEA [None]
  - VOMITING [None]
